FAERS Safety Report 8600606-X (Version None)
Quarter: 2012Q3

REPORT INFORMATION
  Report Type: 
  Country: None (occurrence: None)
  Receive Date: 20120817
  Receipt Date: 20120802
  Transmission Date: 20120928
  Serious: Yes (Other)
  Sender: FDA-Public Use
  Company Number: CA-JNJFOC-20120800721

PATIENT
  Age: 3 Year
  Sex: Male

DRUGS (1)
  1. RISPERDAL [Suspect]
     Indication: INSOMNIA
     Route: 048
     Dates: start: 20120701

REACTIONS (3)
  - AGGRESSION [None]
  - REGRESSIVE BEHAVIOUR [None]
  - ABNORMAL BEHAVIOUR [None]
